FAERS Safety Report 13516437 (Version 3)
Quarter: 2017Q2

REPORT INFORMATION
  Report Type: Spontaneous
  Country: CA (occurrence: CA)
  Receive Date: 20170505
  Receipt Date: 20170613
  Transmission Date: 20170830
  Serious: Yes (Life-Threatening, Hospitalization, Other)
  Sender: FDA-Public Use
  Company Number: CA-HORIZON-BUP-RAV-0120-2017

PATIENT
  Age: 20 Year
  Sex: Male
  Weight: 35.4 kg

DRUGS (8)
  1. RAVICTI [Suspect]
     Active Substance: GLYCEROL PHENYLBUTYRATE
     Indication: CARBAMOYL PHOSPHATE SYNTHETASE DEFICIENCY
     Route: 048
     Dates: start: 20170407
  2. CITRULLINE [Concomitant]
     Active Substance: CITRULLINE
  3. DOMPERIDONE [Concomitant]
     Active Substance: DOMPERIDONE
  4. BUPHENYL [Suspect]
     Active Substance: SODIUM PHENYLBUTYRATE
     Indication: CARBAMOYL PHOSPHATE SYNTHETASE DEFICIENCY
     Dates: start: 19961216, end: 20170507
  5. TOPIRAMATE. [Concomitant]
     Active Substance: TOPIRAMATE
  6. CLONAZEPAM. [Concomitant]
     Active Substance: CLONAZEPAM
  7. FERROUS SULFATE. [Concomitant]
     Active Substance: FERROUS SULFATE
  8. DILANTIN [Concomitant]
     Active Substance: PHENYTOIN

REACTIONS (8)
  - Impaired gastric emptying [Unknown]
  - Pneumonia aspiration [Unknown]
  - Pulmonary oedema [Unknown]
  - Brain injury [Unknown]
  - Loss of consciousness [Unknown]
  - Hyperammonaemia [Unknown]
  - Blood potassium abnormal [Recovered/Resolved]
  - Dyspnoea [Unknown]

NARRATIVE: CASE EVENT DATE: 20170415
